FAERS Safety Report 10711458 (Version 1)
Quarter: 2015Q1

REPORT INFORMATION
  Report Type: Spontaneous
  Country: US (occurrence: US)
  Receive Date: 20150114
  Receipt Date: 20150114
  Transmission Date: 20150721
  Serious: Yes (Other)
  Sender: FDA-Public Use
  Company Number: US-PFIZER INC-2015010729

PATIENT
  Age: 64 Year
  Sex: Male
  Weight: 83 kg

DRUGS (4)
  1. VENLAFAXINE HCL [Suspect]
     Active Substance: VENLAFAXINE HYDROCHLORIDE
     Dosage: UNK
     Dates: start: 201412
  2. GEMFIBROZIL. [Concomitant]
     Active Substance: GEMFIBROZIL
     Indication: BLOOD CHOLESTEROL
     Dosage: 600 MG, 2X/DAY
  3. EFFEXOR XR [Suspect]
     Active Substance: VENLAFAXINE HYDROCHLORIDE
     Indication: TREMOR
     Dosage: 37.5 MG, 1X/DAY (ONCE IN THE EVENING)
  4. DEPAKOTE [Concomitant]
     Active Substance: DIVALPROEX SODIUM
     Dosage: 200 MG, DAILY(AT NIGHT BEFORE GOING TO SLEEP)

REACTIONS (9)
  - Condition aggravated [Unknown]
  - Dyspnoea [Unknown]
  - Vision blurred [Unknown]
  - Panic reaction [Unknown]
  - Insomnia [Unknown]
  - Product label issue [Unknown]
  - Fatigue [Unknown]
  - Visual impairment [Unknown]
  - Feeling abnormal [Unknown]

NARRATIVE: CASE EVENT DATE: 2014
